FAERS Safety Report 10529954 (Version 1)
Quarter: 2014Q4

REPORT INFORMATION
  Report Type: Spontaneous
  Country: US (occurrence: None)
  Receive Date: 20141020
  Receipt Date: 20141020
  Transmission Date: 20150528
  Serious: No
  Sender: FDA-Public Use
  Company Number: None

PATIENT
  Age: 3 Year
  Sex: Female
  Weight: 13.61 kg

DRUGS (1)
  1. CEFDINIR. [Suspect]
     Active Substance: CEFDINIR
     Indication: BACTERIAL INFECTION
     Route: 048
     Dates: start: 20141016, end: 20141017

REACTIONS (5)
  - Screaming [None]
  - Sleep terror [None]
  - Mood swings [None]
  - Insomnia [None]
  - Muscle twitching [None]

NARRATIVE: CASE EVENT DATE: 20141017
